FAERS Safety Report 18458729 (Version 3)
Quarter: 2020Q4

REPORT INFORMATION
  Report Type: Spontaneous
  Country: US (occurrence: US)
  Receive Date: 20201103
  Receipt Date: 20201109
  Transmission Date: 20210114
  Serious: No
  Sender: FDA-Public Use
  Company Number: US-PFIZER INC-2020424237

PATIENT
  Age: 49 Year
  Sex: Female
  Weight: 99.79 kg

DRUGS (1)
  1. SERTRALINE HCL [Suspect]
     Active Substance: SERTRALINE HYDROCHLORIDE
     Dosage: UNK
     Dates: start: 2004, end: 2004

REACTIONS (3)
  - Drug ineffective [Unknown]
  - Tongue disorder [Recovered/Resolved]
  - Product contamination [Recovered/Resolved]

NARRATIVE: CASE EVENT DATE: 2004
